FAERS Safety Report 24882086 (Version 4)
Quarter: 2025Q3

REPORT INFORMATION
  Report Type: Report from Study
  Country: CA (occurrence: CA)
  Receive Date: 20250124
  Receipt Date: 20250930
  Transmission Date: 20251020
  Serious: Yes (Other)
  Sender: BIOCON
  Company Number: CA-MYLANLABS-2023M1062661

PATIENT

DRUGS (2)
  1. HULIO [Suspect]
     Active Substance: ADALIMUMAB-FKJP
     Indication: Crohn^s disease
     Route: 058
     Dates: start: 20230802
  2. HULIO [Suspect]
     Active Substance: ADALIMUMAB-FKJP
     Route: 058
     Dates: start: 20230803

REACTIONS (9)
  - Scleritis [Unknown]
  - Lupus-like syndrome [Unknown]
  - Metabolic dysfunction-associated liver disease [Unknown]
  - Arthralgia [Unknown]
  - Anal fistula [Recovered/Resolved]
  - Liver function test increased [Unknown]
  - Hepatic enzyme increased [Unknown]
  - Product use issue [Unknown]
  - Off label use [Unknown]
